FAERS Safety Report 8612387-4 (Version None)
Quarter: 2012Q3

REPORT INFORMATION
  Report Type: 
  Country: None (occurrence: None)
  Receive Date: 20120813
  Receipt Date: 20120813
  Transmission Date: 20120928
  Serious: Yes (Hospitalization)
  Sender: FDA-Public Use
  Company Number: None

PATIENT
  Age: 74 Year
  Sex: Male
  Weight: 86.4 kg

DRUGS (1)
  1. PRADAXA [Suspect]
     Indication: ATRIAL FIBRILLATION
     Dosage: 75MG BID PO
     Route: 048

REACTIONS (5)
  - HAEMATOCRIT DECREASED [None]
  - CREATININE RENAL CLEARANCE [None]
  - HAEMOGLOBIN DECREASED [None]
  - HAEMATURIA [None]
  - BLOOD CREATININE INCREASED [None]
